FAERS Safety Report 8022109-6 (Version None)
Quarter: 2012Q1

REPORT INFORMATION
  Report Type: 
  Country: None (occurrence: None)
  Receive Date: 20120104
  Receipt Date: 20120102
  Transmission Date: 20120608
  Serious: Yes (Other)
  Sender: FDA-Public Use
  Company Number: FR-SANOFI-AVENTIS-2011SA017422

PATIENT
  Sex: Male
  Weight: 70 kg

DRUGS (12)
  1. MEDIATOR [Concomitant]
     Indication: TYPE 2 DIABETES MELLITUS
     Route: 048
     Dates: start: 19950101, end: 20090901
  2. AMARYL [Concomitant]
     Dosage: DOSE:1 UNIT(S)
     Route: 048
  3. NITROGLYCERIN [Concomitant]
     Route: 062
  4. ATARAX [Concomitant]
     Route: 048
  5. ATORVASTATIN CALCIUM [Concomitant]
     Route: 048
  6. SOTALOL HCL [Concomitant]
     Dates: end: 20030801
  7. PLAVIX [Suspect]
     Route: 048
     Dates: start: 19990602, end: 20100101
  8. LOVENOX [Concomitant]
     Dates: start: 20030801
  9. PREVISCAN [Suspect]
     Route: 048
  10. LASIX [Concomitant]
  11. ATROPINE [Concomitant]
     Dates: start: 20030801
  12. ISOSORBIDE DINITRATE [Concomitant]

REACTIONS (1)
  - GRANULOMA ANNULARE [None]
